FAERS Safety Report 23767105 (Version 1)
Quarter: 2024Q2

REPORT INFORMATION
  Report Type: Spontaneous
  Country: US (occurrence: US)
  Receive Date: 20240422
  Receipt Date: 20240422
  Transmission Date: 20240716
  Serious: Yes (Hospitalization, Other)
  Sender: FDA-Public Use
  Company Number: US-MLMSERVICE-20200511-2295775-1

PATIENT
  Age: 71 Year
  Sex: Male

DRUGS (3)
  1. MYCOPHENOLIC ACID [Suspect]
     Active Substance: MYCOPHENOLIC ACID
     Indication: Immunosuppressant drug therapy
     Dosage: 1.5 GRAM, ONCE A DAY
     Route: 065
     Dates: start: 2008
  2. PREDNISONE [Suspect]
     Active Substance: PREDNISONE
     Indication: Immunosuppressant drug therapy
     Dosage: 7.5 MILLIGRAM, ONCE A DAY (LOW DOSE)
     Route: 048
     Dates: start: 2008
  3. TACROLIMUS [Suspect]
     Active Substance: TACROLIMUS
     Indication: Immunosuppressant drug therapy
     Dosage: UNK, TROUGH LEVELS OF 3-5NG/ML
     Route: 065
     Dates: start: 2008

REACTIONS (4)
  - Nocardiosis [Unknown]
  - Brain abscess [Unknown]
  - Brain oedema [Unknown]
  - Aphasia [Unknown]
